FAERS Safety Report 11920220 (Version 1)
Quarter: 2016Q1

REPORT INFORMATION
  Report Type: Spontaneous
  Country: GB (occurrence: GB)
  Receive Date: 20160115
  Receipt Date: 20160115
  Transmission Date: 20160526
  Serious: Yes (Other)
  Sender: FDA-Public Use
  Company Number: GB-TEVA-625030ACC

PATIENT
  Age: 18 Year
  Sex: Female
  Weight: 56.24 kg

DRUGS (1)
  1. TRIMETHOPRIM. [Suspect]
     Active Substance: TRIMETHOPRIM
     Dosage: 400 MILLIGRAM DAILY;
     Route: 048

REACTIONS (3)
  - Nausea [Recovered/Resolved with Sequelae]
  - Dizziness postural [Recovering/Resolving]
  - Hypoaesthesia [Not Recovered/Not Resolved]
